FAERS Safety Report 8155608-7 (Version None)
Quarter: 2012Q1

REPORT INFORMATION
  Report Type: 
  Country: None (occurrence: None)
  Receive Date: 20120222
  Receipt Date: 20120216
  Transmission Date: 20120608
  Serious: No
  Sender: FDA-Public Use
  Company Number: US-PFIZER INC-2012042271

PATIENT
  Sex: Female

DRUGS (2)
  1. ZOLOFT [Suspect]
     Indication: PANIC ATTACK
     Dosage: 200 MG, DAILY
  2. SERTRALINE HYDROCHLORIDE [Suspect]
     Indication: PANIC ATTACK
     Dosage: UNK

REACTIONS (2)
  - DRUG EFFECT DECREASED [None]
  - PANIC ATTACK [None]
